FAERS Safety Report 19449948 (Version 6)
Quarter: 2021Q4

REPORT INFORMATION
  Report Type: Report from Study
  Country: CA (occurrence: CA)
  Receive Date: 20210622
  Receipt Date: 20211013
  Transmission Date: 20220303
  Serious: Yes (Other)
  Sender: FDA-Public Use
  Company Number: CA-002147023-NVSC2020CA345679

PATIENT
  Age: 31 Year
  Sex: Female

DRUGS (4)
  1. DICLOFENAC [Suspect]
     Active Substance: DICLOFENAC
     Indication: Product used for unknown indication
     Dosage: 50 MG, BID
     Route: 065
     Dates: start: 202010, end: 202012
  2. DICLOFENAC [Suspect]
     Active Substance: DICLOFENAC
     Dosage: UNK
  3. CELEBREX [Concomitant]
     Active Substance: CELECOXIB
     Indication: Product used for unknown indication
     Dosage: 50 MG, BID
     Route: 065
     Dates: start: 202012
  4. CELEBREX [Concomitant]
     Active Substance: CELECOXIB
     Dosage: 50 MG, BID
     Route: 065
     Dates: start: 202006, end: 202010

REACTIONS (20)
  - Psoriatic arthropathy [Unknown]
  - Depressed level of consciousness [Unknown]
  - Peripheral swelling [Unknown]
  - Inflammatory bowel disease [Unknown]
  - Musculoskeletal stiffness [Unknown]
  - Joint swelling [Unknown]
  - Loss of personal independence in daily activities [Unknown]
  - Tenderness [Unknown]
  - Morning sickness [Unknown]
  - Musculoskeletal stiffness [Unknown]
  - Swelling [Unknown]
  - Fatigue [Unknown]
  - Frustration tolerance decreased [Unknown]
  - Gait disturbance [Unknown]
  - Pain in extremity [Unknown]
  - Pain [Unknown]
  - Depression [Unknown]
  - Crying [Unknown]
  - Nail psoriasis [Unknown]
  - Drug ineffective [Unknown]

NARRATIVE: CASE EVENT DATE: 20200101
